FAERS Safety Report 19447526 (Version 3)
Quarter: 2021Q4

REPORT INFORMATION
  Report Type: Spontaneous
  Country: US (occurrence: US)
  Receive Date: 20210622
  Receipt Date: 20211028
  Transmission Date: 20220303
  Serious: No
  Sender: FDA-Public Use
  Company Number: US-BRISTOL-MYERS SQUIBB COMPANY-BMS-2021-060654

PATIENT
  Age: 69 Year
  Sex: Male

DRUGS (2)
  1. SPRYCEL [Suspect]
     Active Substance: DASATINIB
     Indication: Product used for unknown indication
     Dosage: TAKE ONE DAILY
     Route: 048
  2. SPRYCEL [Suspect]
     Active Substance: DASATINIB
     Dosage: UNK
     Route: 065

REACTIONS (3)
  - Lung disorder [Unknown]
  - Blood glucose decreased [Unknown]
  - Dyspnoea [Unknown]
